FAERS Safety Report 6302105-7 (Version None)
Quarter: 2009Q3

REPORT INFORMATION
  Report Type: 
  Country: None (occurrence: None)
  Receive Date: 20090807
  Receipt Date: 20090731
  Transmission Date: 20100115
  Serious: Yes (Hospitalization)
  Sender: FDA-Public Use
  Company Number: FR-B.I. PHARMACEUTICALS,INC./RIDGEFIELD-2009-BP-09295YA

PATIENT
  Sex: Male

DRUGS (3)
  1. OMIX L.P. [Suspect]
     Route: 048
     Dates: start: 20090622, end: 20090629
  2. DITROPAN [Suspect]
     Route: 048
     Dates: start: 20090622, end: 20090629
  3. PRAMIPEXOLE DIHYDROCHLORIDE [Concomitant]
     Dates: start: 20080401

REACTIONS (3)
  - CONFUSIONAL STATE [None]
  - DISORIENTATION [None]
  - HALLUCINATION [None]
